FAERS Safety Report 24557950 (Version 1)
Quarter: 2024Q4

REPORT INFORMATION
  Report Type: Spontaneous
  Country: US (occurrence: US)
  Receive Date: 20241028
  Receipt Date: 20241028
  Transmission Date: 20250114
  Serious: Yes (Hospitalization, Other)
  Sender: RANBAXY
  Company Number: US-SUN PHARMACEUTICAL INDUSTRIES LTD-2024R1-475827

PATIENT
  Age: 13 Year
  Sex: Male

DRUGS (1)
  1. PREDNISONE [Suspect]
     Active Substance: PREDNISONE
     Indication: Sarcoidosis
     Dosage: 60 MILLIGRAM, DAILY
     Route: 065

REACTIONS (7)
  - Interstitial lung disease [Unknown]
  - Granuloma [Unknown]
  - Hypertension [Unknown]
  - Mood altered [Unknown]
  - Therapeutic response decreased [Unknown]
  - Lymphopenia [Unknown]
  - Cytopenia [Unknown]
